FAERS Safety Report 21062454 (Version 2)
Quarter: 2022Q3

REPORT INFORMATION
  Report Type: Spontaneous
  Country: JP (occurrence: JP)
  Receive Date: 20220711
  Receipt Date: 20220801
  Transmission Date: 20221027
  Serious: Yes (Hospitalization, Other)
  Sender: FDA-Public Use
  Company Number: JP-ONO-2021JP011191

PATIENT
  Age: 75 Year
  Sex: Male
  Weight: 57.7 kg

DRUGS (28)
  1. PARSABIV [Suspect]
     Active Substance: ETELCALCETIDE HYDROCHLORIDE
     Indication: Hyperparathyroidism secondary
     Dosage: 2.5 MILLIGRAM, Q56H
     Route: 010
     Dates: start: 20200306, end: 20200325
  2. PARSABIV [Suspect]
     Active Substance: ETELCALCETIDE HYDROCHLORIDE
     Dosage: 5 MILLIGRAM, Q56H
     Route: 010
     Dates: start: 20200327, end: 20200511
  3. PARSABIV [Suspect]
     Active Substance: ETELCALCETIDE HYDROCHLORIDE
     Dosage: 2.5 MILLIGRAM, Q56H
     Route: 010
     Dates: start: 20200513
  4. MAXACALCITOL [Concomitant]
     Active Substance: MAXACALCITOL
     Dosage: 5 MICROGRAM, Q56H
     Route: 065
     Dates: start: 20190807, end: 20190909
  5. MAXACALCITOL [Concomitant]
     Active Substance: MAXACALCITOL
     Dosage: 5 MICROGRAM, Q56H
     Route: 065
     Dates: start: 20190930, end: 20191120
  6. MAXACALCITOL [Concomitant]
     Active Substance: MAXACALCITOL
     Dosage: 5 MICROGRAM, Q56H
     Route: 065
     Dates: start: 20200203, end: 20200417
  7. MAXACALCITOL [Concomitant]
     Active Substance: MAXACALCITOL
     Dosage: 2.5 MICROGRAM, Q56H
     Route: 065
     Dates: start: 20200420
  8. FOSRENOL [Concomitant]
     Active Substance: LANTHANUM CARBONATE
     Dosage: 1500 MILLIGRAM, QD
     Route: 048
     Dates: start: 20190228, end: 20220125
  9. ERYTHROPOIETIN [Concomitant]
     Active Substance: ERYTHROPOIETIN
     Dosage: 9000 DOSAGE FORM, QWK
     Route: 065
     Dates: start: 20190930, end: 20191120
  10. ERYTHROPOIETIN [Concomitant]
     Active Substance: ERYTHROPOIETIN
     Dosage: 9000 DOSAGE FORM, QWK
     Dates: start: 20191216, end: 20191225
  11. ERYTHROPOIETIN [Concomitant]
     Active Substance: ERYTHROPOIETIN
     Dosage: 750 DOSAGE FORM, QWK
     Dates: start: 20200504, end: 20211108
  12. ERYTHROPOIETIN [Concomitant]
     Active Substance: ERYTHROPOIETIN
     Dosage: 1500 DOSAGE FORM, QWK
     Dates: start: 20211112, end: 20211122
  13. ERYTHROPOIETIN [Concomitant]
     Active Substance: ERYTHROPOIETIN
     Dosage: 2250 DOSAGE FORM, QWK
     Dates: start: 20211124, end: 20220131
  14. ERYTHROPOIETIN [Concomitant]
     Active Substance: ERYTHROPOIETIN
     Dosage: 3000 DOSAGE FORM, QWK
     Dates: start: 20220202, end: 20220216
  15. ERYTHROPOIETIN [Concomitant]
     Active Substance: ERYTHROPOIETIN
     Dosage: 4500 DOSAGE FORM, QWK
     Dates: start: 20220218, end: 20220228
  16. ERYTHROPOIETIN [Concomitant]
     Active Substance: ERYTHROPOIETIN
     Dosage: 6750 DOSAGE FORM, QWK
     Dates: start: 20220302, end: 20220316
  17. ERYTHROPOIETIN [Concomitant]
     Active Substance: ERYTHROPOIETIN
     Dosage: 7500 DOSAGE FORM, QWK
     Dates: start: 20220318, end: 20220627
  18. ERYTHROPOIETIN [Concomitant]
     Active Substance: ERYTHROPOIETIN
     Dosage: 4500 DOSAGE FORM, QWK
     Dates: start: 20220629
  19. Fesin [Concomitant]
     Dosage: 80 MILLIGRAM, QWK
     Route: 042
     Dates: start: 20190614, end: 20190628
  20. Fesin [Concomitant]
     Dosage: 80 MILLIGRAM, QWK
     Dates: start: 20191011, end: 20191021
  21. Fesin [Concomitant]
     Dosage: 80 MILLIGRAM, QWK
     Dates: start: 20200717, end: 20200803
  22. Fesin [Concomitant]
     Dosage: 80 MILLIGRAM, QWK
     Dates: start: 20210212, end: 20210222
  23. Fesin [Concomitant]
     Dosage: 80 MILLIGRAM, QWK
     Dates: start: 20210521, end: 20210531
  24. Fesin [Concomitant]
     Dosage: 80 MILLIGRAM, QWK
     Dates: start: 20210618, end: 20210628
  25. Fesin [Concomitant]
     Dosage: 80 MILLIGRAM, QWK
     Dates: start: 20210820, end: 20210913
  26. Fesin [Concomitant]
     Dosage: 80 MILLIGRAM, QWK
     Dates: start: 20220122, end: 20220131
  27. Fesin [Concomitant]
     Dosage: 80 MILLIGRAM, QWK
     Dates: start: 20220318, end: 20220325
  28. Fesin [Concomitant]
     Dosage: 80 MILLIGRAM, QWK
     Dates: start: 20220416, end: 20220425

REACTIONS (11)
  - Lumbar spinal stenosis [Not Recovered/Not Resolved]
  - Squamous cell carcinoma of lung [Recovering/Resolving]
  - Spinal compression fracture [Recovered/Resolved]
  - Wound [Recovered/Resolved]
  - Lip injury [Recovered/Resolved]
  - Fall [Unknown]
  - Contusion [Recovered/Resolved]
  - Swelling of eyelid [Not Recovered/Not Resolved]
  - Wound [Not Recovered/Not Resolved]
  - Fall [Unknown]
  - Fall [Unknown]

NARRATIVE: CASE EVENT DATE: 20201214
